FAERS Safety Report 15933058 (Version 2)
Quarter: 2019Q2

REPORT INFORMATION
  Report Type: Spontaneous
  Country: US (occurrence: US)
  Receive Date: 20190207
  Receipt Date: 20190516
  Transmission Date: 20190711
  Serious: No
  Sender: FDA-Public Use
  Company Number: US-KYOWAKIRIN-2018BKK010596

PATIENT

DRUGS (1)
  1. CRYSVITA [Suspect]
     Active Substance: BUROSUMAB-TWZA
     Indication: HEREDITARY HYPOPHOSPHATAEMIC RICKETS
     Dosage: 98 MG
     Route: 065
     Dates: start: 2016

REACTIONS (8)
  - Migraine [Unknown]
  - Headache [Unknown]
  - Injection site pain [Unknown]
  - Patella fracture [Unknown]
  - Overdose [Not Recovered/Not Resolved]
  - Withdrawal syndrome [Recovering/Resolving]
  - Ligament sprain [Unknown]
  - Product dose omission [Recovered/Resolved]

NARRATIVE: CASE EVENT DATE: 2016
